FAERS Safety Report 8243338-2 (Version None)
Quarter: 2012Q1

REPORT INFORMATION
  Report Type: 
  Country: None (occurrence: None)
  Receive Date: 20120329
  Receipt Date: 20120314
  Transmission Date: 20120608
  Serious: Yes (Death, Other)
  Sender: FDA-Public Use
  Company Number: BR-ROCHE-1049359

PATIENT
  Age: 85 Year
  Sex: Male

DRUGS (4)
  1. HERCEPTIN [Suspect]
     Indication: GASTRIC CANCER
     Dates: start: 20111019
  2. CISPLATIN [Concomitant]
     Dates: start: 20111019
  3. FLUOROURACIL [Concomitant]
     Dates: start: 20111019
  4. LEUCOVORIN CALCIUM [Concomitant]

REACTIONS (4)
  - DEHYDRATION [None]
  - LOSS OF CONSCIOUSNESS [None]
  - BONE MARROW TOXICITY [None]
  - SEPSIS [None]
